FAERS Safety Report 6092369-X (Version None)
Quarter: 2009Q1

REPORT INFORMATION
  Report Type: 
  Country: None (occurrence: None)
  Receive Date: 20090225
  Receipt Date: 20090218
  Transmission Date: 20090719
  Serious: Yes (Other)
  Sender: FDA-Public Use
  Company Number: FR-ROCHE-610513

PATIENT
  Sex: Male
  Weight: 76 kg

DRUGS (12)
  1. METHOXY POLYETHYLENE GLYCOL-EPOETIN BETA [Suspect]
     Dosage: DOSAGE FORM:PFS
     Route: 058
     Dates: start: 20080620
  2. TRIATEC [Concomitant]
     Dosage: DOSE: 5
     Dates: start: 20040101
  3. VERAPAMIL [Concomitant]
     Dosage: DOSE: 240
  4. ELISOR [Concomitant]
     Dosage: DOSE: 40
     Dates: start: 20040101
  5. KARDEGIC [Concomitant]
     Dosage: DOSE : 300
     Dates: start: 20040101
  6. ZYLORIC [Concomitant]
     Dates: start: 20040101
  7. ZYLORIC [Concomitant]
     Dosage: DOSE: 200
  8. EXOMUC [Concomitant]
     Dates: start: 20040101
  9. LASIX [Concomitant]
     Dosage: DOSE: 500, FREQ: 1/2 PER DAY.
  10. KAYEXALATE [Concomitant]
     Dates: start: 20020101
  11. KAYEXALATE [Concomitant]
  12. DOLIPRANE [Concomitant]
     Dates: start: 20040101

REACTIONS (1)
  - ILL-DEFINED DISORDER [None]
